FAERS Safety Report 22326839 (Version 1)
Quarter: 2023Q2

REPORT INFORMATION
  Report Type: Spontaneous
  Country: US (occurrence: US)
  Receive Date: 20230516
  Receipt Date: 20230516
  Transmission Date: 20230722
  Serious: No
  Sender: FDA-Public Use
  Company Number: US-RADIUS HEALTH INC.-2022US002275

PATIENT
  Sex: Female

DRUGS (1)
  1. TYMLOS [Suspect]
     Active Substance: ABALOPARATIDE
     Indication: Senile osteoporosis
     Dosage: 80 MCG, QD
     Route: 058
     Dates: start: 202205

REACTIONS (8)
  - Feeling jittery [Unknown]
  - Hot flush [Unknown]
  - Dry mouth [Unknown]
  - Vomiting [Unknown]
  - Headache [Unknown]
  - Insomnia [Unknown]
  - Nausea [Unknown]
  - Dizziness [Unknown]
